FAERS Safety Report 13569296 (Version 2)
Quarter: 2017Q4

REPORT INFORMATION
  Report Type: Report from Study
  Country: BR (occurrence: BR)
  Receive Date: 20170522
  Receipt Date: 20171228
  Transmission Date: 20180320
  Serious: Yes (Other)
  Sender: FDA-Public Use
  Company Number: ALCN2017BR003368

PATIENT
  Sex: Female
  Weight: 59 kg

DRUGS (2)
  1. PATANOL S (ALC) [Suspect]
     Active Substance: OLOPATADINE HYDROCHLORIDE
     Indication: EYE ALLERGY
     Dosage: 2.5 MG, BID
     Route: 031
  2. HYLO COMOD [Concomitant]
     Active Substance: HYALURONATE SODIUM
     Indication: EYE LUBRICATION THERAPY
     Dosage: 2 GTT, PRN
     Route: 047

REACTIONS (2)
  - Keratoconus [Unknown]
  - Visual impairment [Recovering/Resolving]
